FAERS Safety Report 18242993 (Version 1)
Quarter: 2020Q3

REPORT INFORMATION
  Report Type: Spontaneous
  Country: CA (occurrence: CA)
  Receive Date: 20200908
  Receipt Date: 20200908
  Transmission Date: 20201103
  Serious: Yes (Other)
  Sender: FDA-Public Use
  Company Number: CA-PFIZER INC-2020346450

PATIENT
  Age: 72 Year
  Sex: Female
  Weight: 56.3 kg

DRUGS (1)
  1. SULFASALAZINE. [Suspect]
     Active Substance: SULFASALAZINE
     Dosage: 500 MG, 2X/DAY
     Route: 048

REACTIONS (2)
  - Cytopenia [Unknown]
  - Gastrointestinal disorder [Unknown]
